FAERS Safety Report 25761372 (Version 1)
Quarter: 2025Q3

REPORT INFORMATION
  Report Type: Spontaneous
  Country: EU (occurrence: EU)
  Receive Date: 20250904
  Receipt Date: 20250904
  Transmission Date: 20251021
  Serious: Yes (Other)
  Sender: PFIZER
  Company Number: EU-ABBVIE-6431801

PATIENT
  Age: 28 Year
  Sex: Female
  Weight: 74 kg

DRUGS (5)
  1. ADALIMUMAB [Suspect]
     Active Substance: ADALIMUMAB
     Indication: Crohn^s disease
     Route: 058
  2. RINVOQ [Suspect]
     Active Substance: UPADACITINIB
     Indication: Crohn^s disease
     Route: 048
     Dates: start: 202308, end: 202405
  3. RINVOQ [Suspect]
     Active Substance: UPADACITINIB
     Route: 048
     Dates: start: 202504
  4. METAMIZOLE [Concomitant]
     Active Substance: METAMIZOLE
  5. URSODIOL [Concomitant]
     Active Substance: URSODIOL
     Dates: start: 20250718

REACTIONS (2)
  - Intraductal proliferative breast lesion [Unknown]
  - Maternal exposure during pregnancy [Unknown]

NARRATIVE: CASE EVENT DATE: 20250701
